FAERS Safety Report 6983536-9 (Version None)
Quarter: 2010Q3

REPORT INFORMATION
  Report Type: 
  Country: None (occurrence: None)
  Receive Date: 20100914
  Receipt Date: 20080728
  Transmission Date: 20110219
  Serious: No
  Sender: FDA-Public Use
  Company Number: US-WYE-H05305208

PATIENT
  Age: 48 Year
  Sex: Female
  Weight: 45.4 kg

DRUGS (1)
  1. ADVIL LIQUI-GELS [Suspect]
     Indication: HEADACHE
     Route: 048
     Dates: start: 20080727, end: 20080727

REACTIONS (2)
  - ASTHENIA [None]
  - NAUSEA [None]
